FAERS Safety Report 15643720 (Version 1)
Quarter: 2018Q4

REPORT INFORMATION
  Report Type: Spontaneous
  Country: AM (occurrence: AM)
  Receive Date: 20181121
  Receipt Date: 20181121
  Transmission Date: 20190205
  Serious: Yes (Other)
  Sender: FDA-Public Use
  Company Number: AM-JNJFOC-20181113893

PATIENT
  Age: 29 Year
  Sex: Male

DRUGS (25)
  1. LINEZOLID. [Suspect]
     Active Substance: LINEZOLID
     Indication: PULMONARY TUBERCULOSIS
     Dosage: 600/300
     Route: 065
     Dates: start: 20180328, end: 20180921
  2. DACLATASVIR. [Suspect]
     Active Substance: DACLATASVIR
     Indication: PULMONARY TUBERCULOSIS
     Dosage: 60
     Route: 065
     Dates: start: 20180904, end: 20180921
  3. BEDAQUILINE [Suspect]
     Active Substance: BEDAQUILINE
     Indication: PULMONARY TUBERCULOSIS
     Dosage: 400/200
     Route: 048
     Dates: start: 20180313, end: 20180921
  4. BEDAQUILINE [Suspect]
     Active Substance: BEDAQUILINE
     Indication: PULMONARY TUBERCULOSIS
     Route: 048
     Dates: start: 20181001
  5. PROTIONAMIDE [Suspect]
     Active Substance: PROTIONAMIDE
     Indication: PULMONARY TUBERCULOSIS
     Dosage: 500
     Route: 065
     Dates: start: 20180313, end: 20180921
  6. PYRIDOXINE [Suspect]
     Active Substance: PYRIDOXINE
     Indication: PULMONARY TUBERCULOSIS
     Route: 065
     Dates: start: 20180313, end: 20180921
  7. LINEZOLID. [Suspect]
     Active Substance: LINEZOLID
     Indication: PULMONARY TUBERCULOSIS
     Dosage: 600/300
     Route: 065
     Dates: start: 20180313
  8. LEVOFLOXACIN. [Suspect]
     Active Substance: LEVOFLOXACIN
     Indication: PULMONARY TUBERCULOSIS
     Dosage: 1000
     Route: 065
     Dates: start: 20180313, end: 20180921
  9. LEVOFLOXACIN. [Suspect]
     Active Substance: LEVOFLOXACIN
     Indication: PULMONARY TUBERCULOSIS
     Route: 065
     Dates: start: 20181003
  10. PROTIONAMIDE [Suspect]
     Active Substance: PROTIONAMIDE
     Indication: PULMONARY TUBERCULOSIS
     Route: 065
     Dates: start: 20181002
  11. CYCLOSERINE. [Suspect]
     Active Substance: CYCLOSERINE
     Indication: PULMONARY TUBERCULOSIS
     Dosage: 500
     Route: 065
     Dates: start: 20180313, end: 20180921
  12. CYCLOSERINE. [Suspect]
     Active Substance: CYCLOSERINE
     Indication: PULMONARY TUBERCULOSIS
     Route: 065
     Dates: start: 20181005
  13. CLOFAZIMINE [Suspect]
     Active Substance: CLOFAZIMINE
     Indication: PULMONARY TUBERCULOSIS
     Dosage: 200/100
     Route: 065
     Dates: start: 20180521, end: 20180921
  14. DACLATASVIR. [Suspect]
     Active Substance: DACLATASVIR
     Indication: PULMONARY TUBERCULOSIS
     Route: 065
     Dates: start: 20181011, end: 20181020
  15. SOFOSBUVIR [Suspect]
     Active Substance: SOFOSBUVIR
     Indication: PULMONARY TUBERCULOSIS
     Dosage: 400
     Route: 065
     Dates: start: 20180904, end: 20180921
  16. AMOXICILLIN CLAVULANIC ACID [Suspect]
     Active Substance: AMOXICILLIN\CLAVULANIC ACID
     Indication: PULMONARY TUBERCULOSIS
     Route: 065
     Dates: start: 20181008, end: 20181020
  17. AMINAZIN [Concomitant]
     Active Substance: CHLORPROMAZINE HYDROCHLORIDE
     Route: 065
     Dates: start: 20180830
  18. DIAZEPAM. [Concomitant]
     Active Substance: DIAZEPAM
     Route: 065
     Dates: start: 20180719
  19. LINEZOLID. [Suspect]
     Active Substance: LINEZOLID
     Indication: PULMONARY TUBERCULOSIS
     Route: 065
     Dates: start: 20181006
  20. IMIPENEM [Suspect]
     Active Substance: IMIPENEM
     Indication: PULMONARY TUBERCULOSIS
     Route: 065
     Dates: start: 20181009, end: 20181020
  21. CLOFAZIMINE [Suspect]
     Active Substance: CLOFAZIMINE
     Indication: PULMONARY TUBERCULOSIS
     Route: 065
     Dates: start: 20181004
  22. IMIPENEM [Suspect]
     Active Substance: IMIPENEM
     Indication: PULMONARY TUBERCULOSIS
     Dosage: 2000
     Route: 065
     Dates: start: 20180521, end: 20180921
  23. AMOXICILLIN CLAVULANIC ACID [Suspect]
     Active Substance: AMOXICILLIN\CLAVULANIC ACID
     Indication: PULMONARY TUBERCULOSIS
     Dosage: 2000
     Route: 065
     Dates: start: 20180521, end: 20180921
  24. SOFOSBUVIR [Suspect]
     Active Substance: SOFOSBUVIR
     Indication: PULMONARY TUBERCULOSIS
     Route: 065
     Dates: start: 20181010, end: 20181020
  25. PYRIDOXINE [Suspect]
     Active Substance: PYRIDOXINE
     Indication: PULMONARY TUBERCULOSIS
     Route: 065
     Dates: start: 20181017

REACTIONS (3)
  - Irritability [Unknown]
  - Restlessness [Unknown]
  - Hypersensitivity [Recovered/Resolved]

NARRATIVE: CASE EVENT DATE: 20180920
